FAERS Safety Report 10012924 (Version 1)
Quarter: 2014Q1

REPORT INFORMATION
  Report Type: Spontaneous
  Country: IT (occurrence: IT)
  Receive Date: 20140314
  Receipt Date: 20140314
  Transmission Date: 20141002
  Serious: Yes (Hospitalization)
  Sender: FDA-Public Use
  Company Number: IT-WATSON-2014-04554

PATIENT
  Age: 80 Year
  Sex: Female

DRUGS (6)
  1. SIMVASTATIN (UNKNOWN) [Suspect]
     Indication: DYSLIPIDAEMIA
     Dosage: 10 MG, DAILY
     Route: 048
     Dates: start: 20100101, end: 20140125
  2. SOLOSA [Concomitant]
     Indication: DIABETES MELLITUS
     Dosage: 1.5 MG,  UNK
     Route: 065
  3. SOLOSA [Concomitant]
     Indication: DIABETES MELLITUS
  4. ACETYLSALICYLIC ACID [Concomitant]
     Indication: PRODUCT USED FOR UNKNOWN INDICATION
     Dosage: 1 POSOLOGICAL UNIT/ UNK
     Route: 048
  5. SERTRALINE HYDROCHLORIDE [Concomitant]
     Indication: PRODUCT USED FOR UNKNOWN INDICATION
     Dosage: 1 POSOLOGICAL UNIT/ UNK
     Route: 048
  6. ENALAPRIL MALEATE [Concomitant]
     Indication: HYPERTENSION
     Dosage: 5 MG, UNK
     Route: 048

REACTIONS (1)
  - Rhabdomyolysis [Recovered/Resolved]
